FAERS Safety Report 16496533 (Version 3)
Quarter: 2019Q3

REPORT INFORMATION
  Report Type: Spontaneous
  Country: US (occurrence: US)
  Receive Date: 20190628
  Receipt Date: 20190725
  Transmission Date: 20191004
  Serious: No
  Sender: FDA-Public Use
  Company Number: US-CELGENEUS-USA-20190608476

PATIENT
  Sex: Female

DRUGS (22)
  1. OTEZLA [Suspect]
     Active Substance: APREMILAST
     Indication: PSORIASIS
     Dosage: 60 MILLIGRAM
     Route: 048
     Dates: start: 20190515
  2. CICLOPIROX SHA [Concomitant]
     Indication: PRODUCT USED FOR UNKNOWN INDICATION
     Route: 061
  3. PROTOPIC [Concomitant]
     Active Substance: TACROLIMUS
     Indication: RASH
     Route: 061
  4. TACROLIMUS. [Concomitant]
     Active Substance: TACROLIMUS
     Indication: PRODUCT USED FOR UNKNOWN INDICATION
     Route: 065
     Dates: start: 20180702, end: 20180801
  5. OTEZLA [Suspect]
     Active Substance: APREMILAST
     Dosage: 60 MILLIGRAM
     Route: 048
     Dates: start: 20190624
  6. CALCIPOTRIENE. [Concomitant]
     Active Substance: CALCIPOTRIENE
     Dosage: .001 PERCENT
     Route: 065
  7. DESONIDE. [Concomitant]
     Active Substance: DESONIDE
     Indication: RASH
     Route: 061
  8. CIPROFLOXACIN. [Concomitant]
     Active Substance: CIPROFLOXACIN
     Indication: PRODUCT USED FOR UNKNOWN INDICATION
     Dosage: 1000 MILLIGRAM
     Route: 048
  9. METHYLPREDNISOLONE. [Concomitant]
     Active Substance: METHYLPREDNISOLONE
     Indication: PRODUCT USED FOR UNKNOWN INDICATION
     Route: 048
  10. TOPICORT [Concomitant]
     Active Substance: DESOXIMETASONE
     Indication: RASH
     Route: 065
  11. CICLOPIROX SHA [Concomitant]
     Route: 061
     Dates: start: 20190401
  12. FLUOCINONIDE. [Concomitant]
     Active Substance: FLUOCINONIDE
     Indication: RASH
     Route: 065
     Dates: start: 20190628
  13. LUXIQ [Concomitant]
     Active Substance: BETAMETHASONE VALERATE
     Indication: RASH
     Route: 065
  14. CLOBEX [Concomitant]
     Active Substance: CLOBETASOL PROPIONATE
     Indication: RASH
     Route: 065
  15. DERMOTIC OIL [Concomitant]
     Indication: RASH
     Route: 065
  16. BETAXOLOL. [Concomitant]
     Active Substance: BETAXOLOL
     Indication: PRODUCT USED FOR UNKNOWN INDICATION
     Route: 048
     Dates: start: 20181231
  17. AMLODIPINE [Concomitant]
     Active Substance: AMLODIPINE BESYLATE
     Indication: PRODUCT USED FOR UNKNOWN INDICATION
     Dosage: 10 MILLIGRAM
     Route: 048
     Dates: start: 20181218
  18. TRAMADOL HCL [Concomitant]
     Active Substance: TRAMADOL HYDROCHLORIDE
     Indication: PRODUCT USED FOR UNKNOWN INDICATION
     Dosage: 200 MILLIGRAM
     Route: 048
     Dates: start: 20190111, end: 20190720
  19. DESONATE [Concomitant]
     Active Substance: DESONIDE
     Indication: RASH
     Route: 061
  20. CALCIPOTRIENE. [Concomitant]
     Active Substance: CALCIPOTRIENE
     Indication: PRODUCT USED FOR UNKNOWN INDICATION
     Dosage: .01 PERCENT
     Route: 061
     Dates: start: 20190524
  21. AMLODIPINE [Concomitant]
     Active Substance: AMLODIPINE BESYLATE
     Dosage: 10 MILLIGRAM
     Route: 048
     Dates: start: 20190614
  22. LEVOTHYROXINE. [Concomitant]
     Active Substance: LEVOTHYROXINE
     Indication: PRODUCT USED FOR UNKNOWN INDICATION
     Route: 048
     Dates: start: 20190304

REACTIONS (1)
  - Psoriasis [Not Recovered/Not Resolved]
